FAERS Safety Report 8395451-7 (Version None)
Quarter: 2012Q1

REPORT INFORMATION
  Report Type: 
  Country: None (occurrence: None)
  Receive Date: 20120323
  Receipt Date: 20110502
  Transmission Date: 20120608
  Serious: Yes (Other)
  Sender: FDA-Public Use
  Company Number: 163-21880-11033512

PATIENT
  Age: 71 Year
  Sex: Female

DRUGS (23)
  1. ASPIRIN [Concomitant]
  2. FERROUS SULFATE TAB [Concomitant]
  3. DEXAMETHASONE [Concomitant]
  4. ZOLOFT [Concomitant]
  5. MULTIVITAMIN [Concomitant]
  6. DILAUDID [Concomitant]
  7. PRILOSEC [Concomitant]
  8. ZOMETA [Concomitant]
  9. SYNTHROID [Concomitant]
  10. ESTRADIOL [Concomitant]
  11. PHENERGAN HCL [Concomitant]
  12. ZOFRAN ODT (ONDANSETRON HYDROCHLORIDE) [Concomitant]
  13. PREDNISONE TAB [Concomitant]
  14. TESSALON [Concomitant]
  15. LEVAQUIN [Concomitant]
  16. VICODIN [Concomitant]
  17. IVIG (IMMUNOGLOBULIN) [Concomitant]
  18. REVLIMID [Suspect]
     Indication: MULTIPLE MYELOMA
     Dosage: 25 MG, 1 IN 1 D, PO ; 15 MG, DAILY X 14 DAYS, PO
     Route: 048
     Dates: start: 20101114
  19. REVLIMID [Suspect]
     Indication: MULTIPLE MYELOMA
     Dosage: 25 MG, 1 IN 1 D, PO ; 15 MG, DAILY X 14 DAYS, PO
     Route: 048
     Dates: start: 20110101, end: 20110330
  20. METFORMIN HCL [Concomitant]
  21. MELPHALAN HYDROCHLORIDE [Concomitant]
  22. MAGIC MOUTHWASH (ALL OTHER THERAPEUTIC PRODUCTS) [Concomitant]
  23. PROCHLORPERAZINE MALEATE (PROCHLORPERAZINE MALEATE) [Concomitant]

REACTIONS (3)
  - PANCYTOPENIA [None]
  - OEDEMA PERIPHERAL [None]
  - DISEASE PROGRESSION [None]
